FAERS Safety Report 5989698-4 (Version None)
Quarter: 2008Q4

REPORT INFORMATION
  Report Type: 
  Country: None (occurrence: None)
  Receive Date: 20081210
  Receipt Date: 20081204
  Transmission Date: 20090506
  Serious: Yes (Life-Threatening)
  Sender: FDA-Public Use
  Company Number: US-ROXANE LABORATORIES, INC.-2008-RO-00349RO

PATIENT
  Age: 70 Year
  Sex: Male

DRUGS (2)
  1. LORAZEPAM [Suspect]
  2. DEXMEDETOMIDINE [Concomitant]
     Indication: ANXIETY

REACTIONS (1)
  - ACUTE RESPIRATORY FAILURE [None]
